FAERS Safety Report 9961309 (Version 1)
Quarter: 2014Q1

REPORT INFORMATION
  Report Type: Report from Study
  Country: US (occurrence: US)
  Receive Date: 20140305
  Receipt Date: 20140305
  Transmission Date: 20141002
  Serious: Yes (Other)
  Sender: FDA-Public Use
  Company Number: US-JNJFOC-20140300143

PATIENT
  Age: 20 Year
  Sex: Male
  Weight: 59.7 kg

DRUGS (4)
  1. REMICADE [Suspect]
     Indication: CROHN^S DISEASE
     Route: 042
     Dates: start: 20090421
  2. KEFLEX [Concomitant]
     Indication: PHARYNGITIS STREPTOCOCCAL
     Route: 048
  3. 5-ASA [Concomitant]
     Route: 048
  4. CALCIUM WITH VITAMIN  D [Concomitant]
     Indication: NUTRITIONAL SUPPLEMENTATION
     Route: 065

REACTIONS (1)
  - Dehydration [Recovered/Resolved]
